FAERS Safety Report 13393251 (Version 1)
Quarter: 2017Q1

REPORT INFORMATION
  Report Type: Report from Study
  Country: CA (occurrence: CA)
  Receive Date: 20170331
  Receipt Date: 20170331
  Transmission Date: 20170429
  Serious: Yes (Hospitalization)
  Sender: FDA-Public Use
  Company Number: CA-AMGEN-CANSL2017047244

PATIENT
  Age: 64 Year
  Sex: Male

DRUGS (1)
  1. REPATHA [Suspect]
     Active Substance: EVOLOCUMAB
     Indication: TYPE IIA HYPERLIPIDAEMIA
     Dosage: 140 MG/ML, Q2WK
     Route: 065
     Dates: start: 20161006, end: 201703

REACTIONS (5)
  - Off label use [Unknown]
  - Pain in extremity [Recovering/Resolving]
  - Swelling face [Unknown]
  - Hypoaesthesia oral [Unknown]
  - Musculoskeletal disorder [Recovering/Resolving]
